FAERS Safety Report 18430064 (Version 5)
Quarter: 2021Q1

REPORT INFORMATION
  Report Type: Spontaneous
  Country: JP (occurrence: JP)
  Receive Date: 20201027
  Receipt Date: 20210305
  Transmission Date: 20210419
  Serious: Yes (Death, Life-Threatening, Hospitalization, Disabling)
  Sender: FDA-Public Use
  Company Number: JP-009507513-2010JPN002381J

PATIENT
  Age: 80 Year
  Sex: Female
  Weight: 40 kg

DRUGS (6)
  1. ROSUVASTATIN. [Concomitant]
     Active Substance: ROSUVASTATIN
     Indication: DYSLIPIDAEMIA
     Dosage: 2.5 MILLIGRAM, QD
     Route: 048
     Dates: start: 2007, end: 20201119
  2. KEYTRUDA [Suspect]
     Active Substance: PEMBROLIZUMAB
     Indication: ADENOSQUAMOUS CELL LUNG CANCER STAGE IV
     Dosage: 200 MILLIGRAM, Q3W
     Route: 041
     Dates: start: 20200907, end: 20200907
  3. EDIROL [Concomitant]
     Active Substance: ELDECALCITOL
     Dosage: 0.75 MICROGRAM, QD
     Route: 048
     Dates: end: 20201119
  4. SULFAMETHOXAZOLE (+) TRIMETHOPRIM [Concomitant]
     Active Substance: SULFAMETHOXAZOLE\TRIMETHOPRIM
     Dosage: UNK
     Route: 065
  5. LIMAPROST ALFADEX [Concomitant]
     Active Substance: LIMAPROST
     Dosage: 5 MICROGRAM, BID
     Route: 048
     Dates: end: 20201119
  6. METHYCOBAL [Concomitant]
     Active Substance: METHYLCOBALAMIN
     Dosage: 500 MICROGRAM, TID
     Route: 048
     Dates: end: 20201119

REACTIONS (2)
  - Lung disorder [Fatal]
  - Pyrexia [Recovered/Resolved]

NARRATIVE: CASE EVENT DATE: 20200907
